FAERS Safety Report 7294642-6 (Version None)
Quarter: 2011Q1

REPORT INFORMATION
  Report Type: 
  Country: None (occurrence: None)
  Receive Date: 20110204
  Receipt Date: 20110125
  Transmission Date: 20110831
  Serious: Yes (Other)
  Sender: FDA-Public Use
  Company Number: 762144

PATIENT
  Age: 43 Year
  Sex: Female
  Weight: 107.73 kg

DRUGS (7)
  1. MAGNESIUM SULFATE [Suspect]
     Indication: CONDITION AGGRAVATED
     Dosage: 2 G, X1, INTRAVENOUS (NOT OTHERWISE SPECIFIED)
     Route: 042
     Dates: start: 20101123
  2. MAGNESIUM SULFATE [Suspect]
     Indication: ASTHMA
     Dosage: 2 G, X1, INTRAVENOUS (NOT OTHERWISE SPECIFIED)
     Route: 042
     Dates: start: 20101123
  3. OXYGEN [Concomitant]
  4. IPRATROPIUM BROMIDE [Concomitant]
  5. TERBUTALINE [Concomitant]
  6. METHYLPREDNISOLONE [Concomitant]
  7. ALBUTEROL [Concomitant]

REACTIONS (4)
  - INFUSION RELATED REACTION [None]
  - OFF LABEL USE [None]
  - INJECTION SITE URTICARIA [None]
  - HYPERSENSITIVITY [None]
